FAERS Safety Report 8213082-6 (Version None)
Quarter: 2012Q2

REPORT INFORMATION
  Report Type: 
  Country: None (occurrence: None)
  Receive Date: 20120228
  Receipt Date: 20110725
  Transmission Date: 20120825
  Serious: Yes (Hospitalization, Other)
  Sender: FDA-Public Use
  Company Number: RB-30743-2011

PATIENT
  Age: 38 Year
  Sex: Male

DRUGS (2)
  1. SUBOXONE [Suspect]
     Indication: DRUG DEPENDENCE
     Dosage: 16 MG  SUBLINGUAL)
     Route: 060
     Dates: start: 20110724
  2. SUBOXONE [Suspect]
     Indication: DRUG DEPENDENCE
     Dosage: 16 MG  SUBLINGUAL)
     Route: 060
     Dates: end: 20110704

REACTIONS (1)
  - DRUG WITHDRAWAL SYNDROME [None]
